FAERS Safety Report 21823828 (Version 1)
Quarter: 2023Q1

REPORT INFORMATION
  Report Type: Spontaneous
  Country: US (occurrence: None)
  Receive Date: 20230104
  Receipt Date: 20230104
  Transmission Date: 20230418
  Serious: Yes (Disabling)
  Sender: FDA-Public Use
  Company Number: None

PATIENT
  Age: 63 Year
  Sex: Female
  Weight: 101.25 kg

DRUGS (1)
  1. LINZESS [Suspect]
     Active Substance: LINACLOTIDE
     Indication: Irritable bowel syndrome
     Dosage: OTHER QUANTITY : 30 CAPSULE(S);?
     Route: 048
     Dates: start: 20221024, end: 20221229

REACTIONS (7)
  - Renal pain [None]
  - Chromaturia [None]
  - Blood urine present [None]
  - Protein urine [None]
  - Nephropathy [None]
  - Renal impairment [None]
  - Nephropathy toxic [None]

NARRATIVE: CASE EVENT DATE: 20221025
